FAERS Safety Report 11334980 (Version 1)
Quarter: 2015Q3

REPORT INFORMATION
  Report Type: Spontaneous
  Country: US (occurrence: None)
  Receive Date: 20150731
  Receipt Date: 20150731
  Transmission Date: 20151125
  Serious: Yes (Life-Threatening, Hospitalization, Disabling, Other)
  Sender: FDA-Public Use
  Company Number: None

PATIENT
  Age: 43 Year
  Sex: Female
  Weight: 54.43 kg

DRUGS (1)
  1. MAGNEVIST [Suspect]
     Active Substance: GADOPENTETATE DIMEGLUMINE
     Indication: NUCLEAR MAGNETIC RESONANCE IMAGING
     Dates: start: 20060127, end: 20060127

REACTIONS (25)
  - Oedema [None]
  - Ovarian cyst [None]
  - Gout [None]
  - Ileus [None]
  - Lymphadenopathy [None]
  - Seizure [None]
  - Thyroid neoplasm [None]
  - Burning sensation [None]
  - Carpal tunnel syndrome [None]
  - Blister [None]
  - Hypoaesthesia [None]
  - Neuropathy peripheral [None]
  - Reactive gastropathy [None]
  - Blood cholesterol increased [None]
  - Spinal column stenosis [None]
  - Swelling [None]
  - Pain [None]
  - Abdominal adhesions [None]
  - Breast cyst [None]
  - Arthritis [None]
  - Hypertension [None]
  - Paralysis [None]
  - Granuloma [None]
  - Polyp [None]
  - Central nervous system lesion [None]

NARRATIVE: CASE EVENT DATE: 20060127
